FAERS Safety Report 7647175-9 (Version None)
Quarter: 2011Q3

REPORT INFORMATION
  Report Type: 
  Country: None (occurrence: None)
  Receive Date: 20110801
  Receipt Date: 20110719
  Transmission Date: 20111222
  Serious: Yes (Hospitalization, Disabling, Other)
  Sender: FDA-Public Use
  Company Number: US-ROCHE-754390

PATIENT
  Sex: Female
  Weight: 59 kg

DRUGS (1)
  1. ACCUTANE [Suspect]
     Indication: ACNE
     Route: 048
     Dates: start: 19850925, end: 19851115

REACTIONS (8)
  - INFLAMMATORY BOWEL DISEASE [None]
  - COLITIS ULCERATIVE [None]
  - ANAL FISTULA [None]
  - INTESTINAL OBSTRUCTION [None]
  - DEPRESSION [None]
  - ANAL FISSURE [None]
  - CROHN'S DISEASE [None]
  - GASTROINTESTINAL INJURY [None]
